FAERS Safety Report 7680650-X (Version None)
Quarter: 2011Q3

REPORT INFORMATION
  Report Type: 
  Country: None (occurrence: None)
  Receive Date: 20110811
  Receipt Date: 20110811
  Transmission Date: 20111222
  Serious: No
  Sender: FDA-Public Use
  Company Number: None

PATIENT
  Sex: Female
  Weight: 77.3 kg

DRUGS (1)
  1. INTERLEUKIN-2, RECOMBINANT (CHIRON; ALDESLEUKIN; PROLEUKIN) [Suspect]
     Dosage: 371040000 MU
     Dates: end: 20110805

REACTIONS (1)
  - LYMPHOCYTE COUNT DECREASED [None]
